FAERS Safety Report 24093633 (Version 1)
Quarter: 2024Q3

REPORT INFORMATION
  Report Type: Spontaneous
  Country: US (occurrence: US)
  Receive Date: 20240715
  Receipt Date: 20240715
  Transmission Date: 20241017
  Serious: No
  Sender: PRINSTON PHARMACEUTICAL
  Company Number: US-PRINSTON PHARMACEUTICAL INC.-2024PRN00002

PATIENT
  Age: 64 Year
  Sex: Female

DRUGS (9)
  1. BUPROPION HYDROCHLORIDE [Suspect]
     Active Substance: BUPROPION HYDROCHLORIDE
     Indication: Depression
     Dosage: 200 MG, 1X/DAY
     Route: 048
     Dates: end: 20240102
  2. BUPROPION HYDROCHLORIDE [Suspect]
     Active Substance: BUPROPION HYDROCHLORIDE
     Indication: Anxiety
     Dosage: 200 MG, 1X/DAY
     Route: 048
     Dates: start: 20240103, end: 20240103
  3. BUPROPION HYDROCHLORIDE [Suspect]
     Active Substance: BUPROPION HYDROCHLORIDE
     Indication: Autonomic nervous system imbalance
  4. PROPRANOLOL [Concomitant]
     Active Substance: PROPRANOLOL HYDROCHLORIDE
     Dosage: 0.5 TABLETS, I TOOK A HALF OF ONE
  5. PROPRANOLOL [Concomitant]
     Active Substance: PROPRANOLOL HYDROCHLORIDE
     Dosage: 0.5 TABLETS, I TOOK ANOTHER HALF OF A BETA BLOCKER
  6. PROPRANOLOL [Concomitant]
     Active Substance: PROPRANOLOL HYDROCHLORIDE
     Dosage: 1 TABLETS, I TOOK ANOTHER BETA BLOCKER
  7. PROPRANOLOL [Concomitant]
     Active Substance: PROPRANOLOL HYDROCHLORIDE
     Dosage: 1 TABLETS, TOOK ANOTHER BETA BLOCKER BEFORE BED
  8. XANAX [Concomitant]
     Active Substance: ALPRAZOLAM
     Dosage: UNK, AT BEDTIME
  9. REGULAR VITAMINS [Concomitant]
     Dosage: UNK

REACTIONS (5)
  - Poor quality sleep [Recovering/Resolving]
  - Tachycardia [Recovering/Resolving]
  - Migraine [Recovering/Resolving]
  - Head discomfort [Recovering/Resolving]
  - Product odour abnormal [Not Recovered/Not Resolved]

NARRATIVE: CASE EVENT DATE: 20240103
